FAERS Safety Report 23315879 (Version 2)
Quarter: 2024Q1

REPORT INFORMATION
  Report Type: Report from Study
  Country: CN (occurrence: CN)
  Receive Date: 20231219
  Receipt Date: 20240117
  Transmission Date: 20240409
  Serious: No
  Sender: FDA-Public Use
  Company Number: CN-PFIZER INC-PV202300203667

PATIENT
  Age: 92 Year
  Sex: Female

DRUGS (10)
  1. NIRMATRELVIR\RITONAVIR [Suspect]
     Active Substance: NIRMATRELVIR\RITONAVIR
     Indication: COVID-19
     Dosage: [NIRMATRELVIR 300 MG]/[RITONAVIR 100 MG], BID, PC
     Dates: start: 20220429, end: 20220510
  2. ENTERAL NUTRITIONAL SUSPENSION (SP) [Concomitant]
     Indication: Nutritional supplementation
     Dosage: NASOGASTRIC
     Dates: start: 20220420, end: 20220510
  3. POTASSIUM CHLORIDE [Concomitant]
     Active Substance: POTASSIUM CHLORIDE
     Indication: Blood potassium
     Dosage: EXTENDED-RELEASE TABLETS
     Route: 048
     Dates: start: 20220420, end: 20220510
  4. AMIODARONE [Concomitant]
     Active Substance: AMIODARONE
     Indication: Coronary artery disease
     Dosage: UNK
     Route: 048
     Dates: start: 20220420, end: 20220503
  5. PANTOPRAZOLE SODIUM [Concomitant]
     Active Substance: PANTOPRAZOLE SODIUM
     Indication: Prophylaxis
     Dosage: ENTERIC-COATED TABLETS
     Route: 048
     Dates: start: 20220420, end: 20220503
  6. ESTAZOLAM [Concomitant]
     Active Substance: ESTAZOLAM
     Indication: Insomnia
     Dosage: UNK
     Route: 048
     Dates: start: 20220420, end: 20220503
  7. MOXIFLOXACIN HYDROCHLORIDE [Concomitant]
     Active Substance: MOXIFLOXACIN HYDROCHLORIDE\MOXIFLOXACIN HYDROCHLORIDE MONOHYDRATE
     Indication: Pneumonia
     Dosage: UNK
     Route: 050
     Dates: start: 20220426, end: 20220503
  8. HERBALS\MENTHOL [Concomitant]
     Active Substance: HERBALS\MENTHOL
     Indication: COVID-19
     Dosage: UNK
     Route: 048
     Dates: start: 20220420, end: 20220420
  9. MOXIFLOXACIN HYDROCHLORIDE [Concomitant]
     Active Substance: MOXIFLOXACIN HYDROCHLORIDE\MOXIFLOXACIN HYDROCHLORIDE MONOHYDRATE
     Indication: Antiinflammatory therapy
     Dosage: UNK
     Route: 050
     Dates: start: 20220426, end: 20220426
  10. SODIUM CHLORIDE [Concomitant]
     Active Substance: SODIUM CHLORIDE
     Indication: Prophylaxis
     Dosage: NASOGASTRIC
     Dates: start: 20220429, end: 20220429

REACTIONS (1)
  - Overdose [Unknown]
